FAERS Safety Report 4687862-8 (Version None)
Quarter: 2005Q2

REPORT INFORMATION
  Report Type: 
  Country: None (occurrence: None)
  Receive Date: 20050607
  Receipt Date: 20050603
  Transmission Date: 20051028
  Serious: Yes (Hospitalization)
  Sender: FDA-Public Use
  Company Number: LTI2005A00075

PATIENT
  Age: 72 Year
  Sex: Male

DRUGS (1)
  1. ENANTONE LP 11.25 MG PREG INJ(LEULPROLIDE ACETATE) (11.25 MILLIGRAM, I [Suspect]
     Indication: PROSTATE CANCER
     Dosage: 11.25 MG (11.25 MG, 1 IN 3 M) INTRA-MUSCULAR
     Route: 030
     Dates: start: 20030101, end: 20050120

REACTIONS (4)
  - ATYPICAL MYCOBACTERIAL INFECTION [None]
  - SKIN ULCER [None]
  - STAPHYLOCOCCAL ABSCESS [None]
  - SUBCUTANEOUS ABSCESS [None]
